FAERS Safety Report 19875288 (Version 2)
Quarter: 2022Q1

REPORT INFORMATION
  Report Type: Spontaneous
  Country: BG (occurrence: BG)
  Receive Date: 20210924
  Receipt Date: 20220120
  Transmission Date: 20220423
  Serious: Yes (Other)
  Sender: FDA-Public Use
  Company Number: BG-BDA-21469

PATIENT
  Age: 57 Year
  Sex: Male

DRUGS (1)
  1. HYDROCHLOROTHIAZIDE\TELMISARTAN [Suspect]
     Active Substance: HYDROCHLOROTHIAZIDE\TELMISARTAN
     Indication: Hypertension
     Dosage: HALF TABLETS DAILY?80/12.5MG
     Route: 048

REACTIONS (2)
  - Dermal cyst [Recovered/Resolved]
  - Melanocytic naevus [Recovered/Resolved]
